FAERS Safety Report 4424238-2 (Version None)
Quarter: 2004Q3

REPORT INFORMATION
  Report Type: 
  Country: None (occurrence: None)
  Receive Date: 20040810
  Receipt Date: 20040810
  Transmission Date: 20050211
  Serious: Yes (Hospitalization, Other)
  Sender: FDA-Public Use
  Company Number: None

PATIENT
  Age: 64 Year
  Sex: Male
  Weight: 95.3 kg

DRUGS (9)
  1. INTEGRILIN [Suspect]
     Indication: ANTIPLATELET THERAPY
     Dosage: 2(8.5 ML BOLUSES)15 ML/HR IV
     Route: 042
     Dates: start: 20040802, end: 20040805
  2. HEPARIN [Suspect]
     Dosage: 4,775 UNITS BOLUS
     Route: 050
     Dates: start: 20040802
  3. MIDAZOLAM [Concomitant]
  4. FENTANYL [Concomitant]
  5. NITROGLYCERIN [Concomitant]
  6. CEFAZOLIN [Concomitant]
  7. ASPIRIN [Concomitant]
  8. CLOPIDOGREL [Concomitant]
  9. PEPCID [Concomitant]

REACTIONS (3)
  - BLOOD CREATINE PHOSPHOKINASE INCREASED [None]
  - BLOOD CREATINE PHOSPHOKINASE MB INCREASED [None]
  - POST PROCEDURAL HAEMORRHAGE [None]
